FAERS Safety Report 24202991 (Version 1)
Quarter: 2024Q3

REPORT INFORMATION
  Report Type: Spontaneous
  Country: CA (occurrence: CA)
  Receive Date: 20240813
  Receipt Date: 20240813
  Transmission Date: 20241016
  Serious: No
  Sender: USPHARMA
  Company Number: CA-USP-004887

PATIENT
  Sex: Male

DRUGS (1)
  1. NITRO-DUR [Suspect]
     Active Substance: NITROGLYCERIN
     Indication: Product used for unknown indication
     Dosage: PATCH
     Route: 065

REACTIONS (1)
  - Burning sensation [Not Recovered/Not Resolved]
